FAERS Safety Report 5798325-0 (Version None)
Quarter: 2008Q3

REPORT INFORMATION
  Report Type: 
  Country: None (occurrence: None)
  Receive Date: 20080702
  Receipt Date: 20080627
  Transmission Date: 20090109
  Serious: Yes (Hospitalization)
  Sender: FDA-Public Use
  Company Number: US-ASTRAZENECA-2008UW11471

PATIENT
  Age: 77 Year
  Sex: Female
  Weight: 57.3 kg

DRUGS (15)
  1. SYMBICORT [Suspect]
     Indication: ASTHMA
     Route: 055
     Dates: start: 20080210
  2. SYMBICORT [Suspect]
     Dosage: 160/4.5 UG TWO PUFFS BID
     Route: 055
     Dates: start: 20080514, end: 20080605
  3. VITAMINS [Concomitant]
  4. CALCIUM [Concomitant]
  5. ASPIRIN [Concomitant]
  6. GLYBURIDE [Concomitant]
  7. DIGOXIN [Concomitant]
  8. CETIRIZINE HCL [Concomitant]
  9. PREDNISONE TAB [Concomitant]
  10. HYDRALAZINE HCL [Concomitant]
  11. FEXOFENADINE [Concomitant]
  12. MICRONASE [Concomitant]
  13. SPIRIVA [Concomitant]
  14. HYDROXYZINE HCL [Concomitant]
  15. PROAIR HFA [Concomitant]
     Dosage: AS NEEDED

REACTIONS (4)
  - CEREBROVASCULAR INSUFFICIENCY [None]
  - FALL [None]
  - HYPERTENSION [None]
  - SYNCOPE [None]
